FAERS Safety Report 4909565-4 (Version None)
Quarter: 2006Q1

REPORT INFORMATION
  Report Type: 
  Country: None (occurrence: None)
  Receive Date: 20060213
  Receipt Date: 20050330
  Transmission Date: 20060701
  Serious: Yes (Hospitalization, Disabling)
  Sender: FDA-Public Use
  Company Number: US-MERCK-0503USA05244

PATIENT
  Age: 54 Year
  Sex: Male
  Weight: 86 kg

DRUGS (4)
  1. VIOXX [Suspect]
     Indication: GOUT
     Route: 048
     Dates: start: 20001124, end: 20030901
  2. ALLOPURINOL [Concomitant]
     Route: 065
     Dates: start: 20000101
  3. LISINOPRIL [Concomitant]
     Route: 065
     Dates: start: 20010101
  4. ATENOLOL [Concomitant]
     Route: 065

REACTIONS (6)
  - CARDIAC DISORDER [None]
  - CHEST PAIN [None]
  - HYPERTENSION [None]
  - MITRAL VALVE INCOMPETENCE [None]
  - PNEUMONIA [None]
  - SYNCOPE [None]
